FAERS Safety Report 12480328 (Version 1)
Quarter: 2016Q2

REPORT INFORMATION
  Report Type: Spontaneous
  Country: US (occurrence: None)
  Receive Date: 20160617
  Receipt Date: 20160617
  Transmission Date: 20160815
  Serious: Yes (Other)
  Sender: FDA-Public Use
  Company Number: None

PATIENT
  Age: 55 Year
  Sex: Female
  Weight: 81.65 kg

DRUGS (2)
  1. SINUS MEDICATIONS [Concomitant]
  2. LEVOTHYROXINE, 0.1 MG MYLAN [Suspect]
     Active Substance: LEVOTHYROXINE SODIUM
     Indication: BASEDOW^S DISEASE
     Dosage: 1 TABLET(S) ONCE A DAY TAKEN BY MOUTH
     Route: 048

REACTIONS (4)
  - Temperature intolerance [None]
  - Alopecia [None]
  - Diarrhoea [None]
  - Dysgeusia [None]

NARRATIVE: CASE EVENT DATE: 20150616
